FAERS Safety Report 6882229-6 (Version None)
Quarter: 2010Q3

REPORT INFORMATION
  Report Type: 
  Country: None (occurrence: None)
  Receive Date: 20100729
  Receipt Date: 20100721
  Transmission Date: 20110219
  Serious: Yes (Other)
  Sender: FDA-Public Use
  Company Number: US-ELI_LILLY_AND_COMPANY-US201007005137

PATIENT
  Sex: Female

DRUGS (1)
  1. HUMULIN 70/30 [Suspect]

REACTIONS (5)
  - BLOOD GLUCOSE INCREASED [None]
  - POOR QUALITY DRUG ADMINISTERED [None]
  - ROAD TRAFFIC ACCIDENT [None]
  - SINUSITIS [None]
  - STRESS [None]
